FAERS Safety Report 7979240-0 (Version None)
Quarter: 2011Q4

REPORT INFORMATION
  Report Type: 
  Country: None (occurrence: None)
  Receive Date: 20111214
  Receipt Date: 20111214
  Transmission Date: 20120403
  Serious: No
  Sender: FDA-Public Use
  Company Number: None

PATIENT
  Age: 15 Year
  Sex: Female
  Weight: 58.967 kg

DRUGS (1)
  1. TOPIRAMATE [Suspect]
     Indication: OFF LABEL USE
     Dosage: 50MG
     Route: 048
     Dates: start: 20111121, end: 20111211

REACTIONS (3)
  - DEPRESSION [None]
  - SUICIDAL IDEATION [None]
  - DRUG EFFECT DECREASED [None]
